FAERS Safety Report 15781518 (Version 3)
Quarter: 2019Q1

REPORT INFORMATION
  Report Type: Report from Study
  Country: EC (occurrence: EC)
  Receive Date: 20190102
  Receipt Date: 20190222
  Transmission Date: 20190417
  Serious: Yes (Hospitalization)
  Sender: FDA-Public Use
  Company Number: PHHY2018EC198496

PATIENT
  Age: 71 Year
  Sex: Female

DRUGS (3)
  1. SANDOSTATIN LAR DEPOT [Suspect]
     Active Substance: OCTREOTIDE ACETATE
     Indication: ACROMEGALY
     Dosage: 20 MG, QMO
     Route: 030
     Dates: start: 20150521
  2. ARADOS [Concomitant]
     Indication: HYPERTENSION
     Dosage: 50 MG, BID
     Route: 048
     Dates: start: 2014
  3. VITAMINS NOS [Concomitant]
     Active Substance: VITAMINS
     Indication: PRODUCT USED FOR UNKNOWN INDICATION
     Dosage: UNK
     Route: 065
     Dates: start: 20181220

REACTIONS (11)
  - Cerebrovascular accident [Recovering/Resolving]
  - Hemiplegia [Not Recovered/Not Resolved]
  - Blood cholesterol increased [Recovered/Resolved]
  - Dyslipidaemia [Recovered/Resolved]
  - Speech disorder [Recovering/Resolving]
  - Anger [Unknown]
  - Gait inability [Not Recovered/Not Resolved]
  - Headache [Unknown]
  - Dizziness [Recovering/Resolving]
  - Malaise [Not Recovered/Not Resolved]
  - Syncope [Recovering/Resolving]

NARRATIVE: CASE EVENT DATE: 201802
